FAERS Safety Report 6176011-5 (Version None)
Quarter: 2009Q2

REPORT INFORMATION
  Report Type: 
  Country: None (occurrence: None)
  Receive Date: 20090501
  Receipt Date: 20090424
  Transmission Date: 20091009
  Serious: Yes (Hospitalization, Other)
  Sender: FDA-Public Use
  Company Number: HU-AVENTIS-200813830GDDC

PATIENT
  Age: 61 Year
  Sex: Male

DRUGS (9)
  1. ARAVA [Suspect]
     Indication: RHEUMATOID ARTHRITIS
     Route: 048
     Dates: start: 20050101, end: 20080410
  2. HUMIRA [Suspect]
     Route: 042
     Dates: start: 20070101, end: 20080401
  3. MEDROL [Concomitant]
     Route: 048
     Dates: start: 20050101
  4. CATAFLAM                           /00372302/ [Concomitant]
     Dosage: DOSE: UNK
     Route: 048
     Dates: start: 20070101
  5. OMEPRAZOL [Concomitant]
     Dosage: DOSE QUANTITY: 1
     Route: 048
     Dates: start: 20050101
  6. OMEPRAZOL [Concomitant]
     Indication: GASTRITIS
     Dosage: DOSE QUANTITY: 1
     Route: 048
     Dates: start: 20050101
  7. NORMODIPINE [Concomitant]
     Dosage: DOSE: UNK
  8. GLUCOBAY [Concomitant]
     Dosage: DOSE: UNK
  9. SYMBICORT [Concomitant]
     Dosage: DOSE: UNK
     Route: 055

REACTIONS (7)
  - ARTHRALGIA [None]
  - ARTHRITIS BACTERIAL [None]
  - BACK PAIN [None]
  - ESCHERICHIA URINARY TRACT INFECTION [None]
  - HEPATITIS TOXIC [None]
  - MALAISE [None]
  - PYREXIA [None]
